FAERS Safety Report 21654348 (Version 1)
Quarter: 2022Q4

REPORT INFORMATION
  Report Type: Spontaneous
  Country: US (occurrence: US)
  Receive Date: 20221129
  Receipt Date: 20221129
  Transmission Date: 20230112
  Serious: No
  Sender: FDA-Public Use
  Company Number: US-009507513-2211USA000130

PATIENT
  Sex: Male

DRUGS (4)
  1. REMERON [Suspect]
     Active Substance: MIRTAZAPINE
     Dosage: DOSE AS NEEDED
     Route: 048
  2. BELSOMRA [Suspect]
     Active Substance: SUVOREXANT
     Indication: Sleep disorder therapy
     Dosage: 10 MILLIGRAM, ONCE PER NIGHT
     Route: 048
  3. BELSOMRA [Suspect]
     Active Substance: SUVOREXANT
     Dosage: 15 MILLIGRAM, ONCE, PER NIGHT
     Route: 048
  4. MELATONIN [Suspect]
     Active Substance: MELATONIN
     Dosage: ONCE, PER NIGHT

REACTIONS (1)
  - Eye disorder [Unknown]
